FAERS Safety Report 8186441-8 (Version None)
Quarter: 2012Q1

REPORT INFORMATION
  Report Type: 
  Country: None (occurrence: None)
  Receive Date: 20120305
  Receipt Date: 20120305
  Transmission Date: 20120608
  Serious: Yes (Other)
  Sender: FDA-Public Use
  Company Number: None

PATIENT
  Sex: Female
  Weight: 63.5036 kg

DRUGS (1)
  1. MISCHUM ROLL-ON SUPERIER STRENGTH REVLON [Suspect]
     Dosage: DAILY TOPICAL
     Route: 061
     Dates: start: 20120110, end: 20120127

REACTIONS (2)
  - APPLICATION SITE DISCOLOURATION [None]
  - FEELING ABNORMAL [None]
